FAERS Safety Report 4989837-8 (Version None)
Quarter: 2006Q2

REPORT INFORMATION
  Report Type: 
  Country: None (occurrence: None)
  Receive Date: 20060428
  Receipt Date: 20060420
  Transmission Date: 20061013
  Serious: Yes (Other)
  Sender: FDA-Public Use
  Company Number: 2006053952

PATIENT
  Age: 21 Year
  Sex: Male
  Weight: 72.5755 kg

DRUGS (1)
  1. UNISOM [Suspect]
     Indication: INSOMNIA
     Dosage: 3 SLEEPGELS, THEN 3 MORE 1.5 HOURS LATER, ORAL
     Route: 048
     Dates: start: 20060419

REACTIONS (3)
  - HALLUCINATION [None]
  - INAPPROPRIATE SCHEDULE OF DRUG ADMINISTRATION [None]
  - INCORRECT DOSE ADMINISTERED [None]
